FAERS Safety Report 21669830 (Version 1)
Quarter: 2022Q4

REPORT INFORMATION
  Report Type: Spontaneous
  Country: DE (occurrence: DE)
  Receive Date: 20221201
  Receipt Date: 20221201
  Transmission Date: 20230112
  Serious: Yes (Death, Hospitalization, Other)
  Sender: FDA-Public Use
  Company Number: DE-BAXTER-2022BAX024999

PATIENT
  Age: 68 Year
  Sex: Male

DRUGS (23)
  1. GEMCITABINE HYDROCHLORIDE [Suspect]
     Active Substance: GEMCITABINE HYDROCHLORIDE
     Indication: Product used for unknown indication
     Dosage: UNK UNK, UNKNOWN (9TH CYCLE ABRAXANE/GEMCITABINE (75% OF STANDARD DOSE) DAY)
     Route: 065
     Dates: start: 20190116
  2. GEMCITABINE HYDROCHLORIDE [Suspect]
     Active Substance: GEMCITABINE HYDROCHLORIDE
     Dosage: UNK UNK, UNKNOWN (9TH CYCLE ABRAXANE/GEMCITABINE (75% OF STANDARD DOSE) DAY 8)
     Route: 065
     Dates: start: 20190123
  3. GEMCITABINE HYDROCHLORIDE [Suspect]
     Active Substance: GEMCITABINE HYDROCHLORIDE
     Dosage: UNK UNK, UNKNOWN (11TH CYCLE ABRAXANE/GEMCITABINE (75% OF STANDARD DOSE) DAY 8)
     Route: 065
     Dates: start: 20190320
  4. GEMCITABINE HYDROCHLORIDE [Suspect]
     Active Substance: GEMCITABINE HYDROCHLORIDE
     Dosage: UNK UNK, UNKNOWN (10TH CYCLE ABRAXANE/GEMCITABINE (75% OF THE STANDARD DOSE) DAY 8)
     Route: 065
     Dates: start: 20190220
  5. GEMCITABINE HYDROCHLORIDE [Suspect]
     Active Substance: GEMCITABINE HYDROCHLORIDE
     Dosage: UNK UNK, UNKNOWN (9TH CYCLE ABRAXANE/GEMCITABINE (75% OF THE STANDARD DOSE) DAY 15)
     Route: 065
     Dates: start: 20190130
  6. GEMCITABINE HYDROCHLORIDE [Suspect]
     Active Substance: GEMCITABINE HYDROCHLORIDE
     Dosage: UNK UNK, UNKNOWN (10TH CYCLE ABRAXANE/GEMCITABINE (75% OF STANDARD DOSE) DAY 1)
     Route: 065
     Dates: start: 20190213
  7. GEMCITABINE HYDROCHLORIDE [Suspect]
     Active Substance: GEMCITABINE HYDROCHLORIDE
     Dosage: UNK UNK, UNKNOWN (10TH CYCLE ABRAXANE/GEMCITABINE (75% OF STANDARD DOSE) DAY 15)
     Route: 065
     Dates: start: 20190227
  8. GEMCITABINE HYDROCHLORIDE [Suspect]
     Active Substance: GEMCITABINE HYDROCHLORIDE
     Dosage: UNK UNK, UNKNOWN (11TH CYCLE ABRAXANE/GEMCITABINE (75% OF STANDARD DOSE) DAY 1)
     Route: 065
     Dates: start: 20190313
  9. OLIMEL [Suspect]
     Active Substance: AMINO ACIDS\DEXTROSE\SOYBEAN OIL
     Indication: Parenteral nutrition
     Dosage: UNK UNK, UNKNOWN
     Route: 065
     Dates: start: 20190115
  10. SODIUM CHLORIDE [Suspect]
     Active Substance: SODIUM CHLORIDE
     Indication: Cardiovascular disorder
     Dosage: UNK UNK, UNKNOWN (BEFORE PLP 500 ML)
     Route: 042
     Dates: start: 20190107
  11. SODIUM CHLORIDE [Suspect]
     Active Substance: SODIUM CHLORIDE
     Dosage: UNK UNK, UNKNOWN (AFTER PLP 500 ML)
     Route: 042
     Dates: start: 20190115
  12. SODIUM CHLORIDE [Suspect]
     Active Substance: SODIUM CHLORIDE
     Dosage: UNK UNK, UNKNOWN (AFTER PLP 500 ML)
     Route: 042
     Dates: start: 20190206
  13. SODIUM CHLORIDE [Suspect]
     Active Substance: SODIUM CHLORIDE
     Dosage: UNK UNK, UNKNOWN (AFTER PLP 500 ML)
     Route: 042
     Dates: start: 20190218
  14. SODIUM CHLORIDE [Suspect]
     Active Substance: SODIUM CHLORIDE
     Dosage: UNK UNK, UNKNOWN (AFTER PLP 500 ML)
     Route: 042
     Dates: start: 20190306
  15. CERNEVIT [Suspect]
     Active Substance: VITAMINS
     Indication: Parenteral nutrition
     Dosage: UNK UNK, UNKNOWN
     Route: 065
     Dates: start: 20190115
  16. ABRAXANE [Suspect]
     Active Substance: PACLITAXEL
     Indication: Product used for unknown indication
     Dosage: UNK UNK, UNKNOWN
     Route: 065
     Dates: start: 20190130
  17. ABRAXANE [Suspect]
     Active Substance: PACLITAXEL
     Dosage: UNK UNK, UNKNOWN
     Route: 065
     Dates: start: 20190320
  18. ABRAXANE [Suspect]
     Active Substance: PACLITAXEL
     Dosage: UNK UNK, UNKNOWN
     Route: 065
     Dates: start: 20190116
  19. ABRAXANE [Suspect]
     Active Substance: PACLITAXEL
     Dosage: UNK UNK, UNKNOWN
     Route: 065
     Dates: start: 20190123
  20. ABRAXANE [Suspect]
     Active Substance: PACLITAXEL
     Dosage: UNK UNK, UNKNOWN
     Route: 065
     Dates: start: 20190313
  21. ABRAXANE [Suspect]
     Active Substance: PACLITAXEL
     Dosage: UNK UNK, UNKNOWN
     Route: 065
     Dates: start: 20190227
  22. ABRAXANE [Suspect]
     Active Substance: PACLITAXEL
     Dosage: UNK UNK, UNKNOWN
     Route: 065
     Dates: start: 20190220
  23. ABRAXANE [Suspect]
     Active Substance: PACLITAXEL
     Dosage: UNK UNK, UNKNOWN
     Route: 065
     Dates: start: 20190213

REACTIONS (12)
  - Death [Fatal]
  - General physical health deterioration [Unknown]
  - Dyspnoea [Unknown]
  - Depressed mood [Unknown]
  - Lip dry [Unknown]
  - Nasal mucosal disorder [Unknown]
  - Taste disorder [Unknown]
  - Dizziness [Unknown]
  - Gait disturbance [Unknown]
  - Decreased appetite [Unknown]
  - Diarrhoea [Unknown]
  - Fatigue [Unknown]

NARRATIVE: CASE EVENT DATE: 20190115
